FAERS Safety Report 5801907-0 (Version None)
Quarter: 2008Q3

REPORT INFORMATION
  Report Type: 
  Country: None (occurrence: None)
  Receive Date: 20080707
  Receipt Date: 20080624
  Transmission Date: 20090109
  Serious: Yes (Hospitalization)
  Sender: FDA-Public Use
  Company Number: US-LLY01-USA041082117

PATIENT
  Sex: Male
  Weight: 113.64 kg

DRUGS (3)
  1. CYMBALTA [Suspect]
     Indication: DEPRESSION
     Dosage: 60 MG, DAILY (1/D)
     Route: 048
     Dates: start: 20040816, end: 20041022
  2. LUVOX [Concomitant]
     Dosage: 100 MG, DAILY (1/D)
     Dates: end: 20040816
  3. FLONASE [Concomitant]
     Dosage: 1 UNK, DAILY (1/D)
     Route: 045

REACTIONS (11)
  - CONFUSIONAL STATE [None]
  - GAIT DISTURBANCE [None]
  - HALLUCINATION, VISUAL [None]
  - JAUNDICE [None]
  - LIVER DISORDER [None]
  - NAUSEA [None]
  - POOR QUALITY SLEEP [None]
  - PRURITUS [None]
  - URTICARIA [None]
  - VOMITING [None]
  - WEIGHT DECREASED [None]
